FAERS Safety Report 25333154 (Version 3)
Quarter: 2025Q3

REPORT INFORMATION
  Report Type: Spontaneous
  Country: BR (occurrence: BR)
  Receive Date: 20250519
  Receipt Date: 20250707
  Transmission Date: 20251020
  Serious: Yes (Other)
  Sender: INSUD PHARMA
  Company Number: BR-EXELTIS PHARMACEUTICAL HOLDING, S.L.-2505BR03658

PATIENT
  Age: 29 Year
  Sex: Female

DRUGS (1)
  1. DROSPIRENONE [Suspect]
     Active Substance: DROSPIRENONE
     Indication: Contraception
     Dosage: 1 DOSAGE FORM, QD, ALWAYS AT THE SAME TIME
     Route: 048
     Dates: start: 202405

REACTIONS (5)
  - Muscle contractions involuntary [Unknown]
  - Eye paraesthesia [Unknown]
  - Trigeminal neuropathy [Unknown]
  - Osteoporosis [Unknown]
  - Osteopenia [Unknown]

NARRATIVE: CASE EVENT DATE: 20240701
